FAERS Safety Report 5718655-8 (Version None)
Quarter: 2008Q2

REPORT INFORMATION
  Report Type: 
  Country: None (occurrence: None)
  Receive Date: 20080425
  Receipt Date: 20080402
  Transmission Date: 20081010
  Serious: Yes (Life-Threatening, Hospitalization, Disabling, Other)
  Sender: FDA-Public Use
  Company Number: ES-GENENTECH-259537

PATIENT
  Sex: Female
  Weight: 55 kg

DRUGS (1)
  1. MABTHERA [Suspect]
     Indication: ANAEMIA HAEMOLYTIC AUTOIMMUNE
     Dosage: 560 MG, 1/WEEK
     Route: 042
     Dates: start: 20060401

REACTIONS (7)
  - CANDIDIASIS [None]
  - CRYPTOGENIC ORGANISING PNEUMONIA [None]
  - KLEBSIELLA INFECTION [None]
  - NO THERAPEUTIC RESPONSE [None]
  - RESPIRATORY FAILURE [None]
  - SPUTUM CULTURE POSITIVE [None]
  - SUPERINFECTION [None]
